FAERS Safety Report 5106591-X (Version None)
Quarter: 2006Q3

REPORT INFORMATION
  Report Type: 
  Country: None (occurrence: None)
  Receive Date: 20060918
  Receipt Date: 20000522
  Transmission Date: 20061208
  Serious: Yes (Hospitalization)
  Sender: FDA-Public Use
  Company Number: 2000AP02322

PATIENT
  Age: 26796 Day
  Sex: Male

DRUGS (9)
  1. ZOLADEX [Suspect]
     Indication: PROSTATE CANCER
     Route: 058
     Dates: start: 19990923
  2. ANDROCUR [Suspect]
     Indication: PROSTATE CANCER
     Route: 048
     Dates: start: 19990923, end: 19991017
  3. THYROXIN [Concomitant]
     Indication: HYPOTHYROIDISM
     Route: 048
     Dates: start: 19850101
  4. RETAFYLLIN [Concomitant]
     Indication: ASTHMA
     Route: 048
     Dates: start: 19900101
  5. SALBUVENT [Concomitant]
     Route: 055
     Dates: start: 19900101
  6. CORTIVENT [Concomitant]
     Dates: start: 19900101
  7. OXIS [Concomitant]
     Dates: start: 19970101
  8. BLOCANOL [Concomitant]
     Indication: GLAUCOMA
     Dates: start: 19800101
  9. TRAMADOL HCL [Concomitant]
     Route: 048
     Dates: start: 19990417

REACTIONS (1)
  - SCROTAL HAEMATOMA [None]
